FAERS Safety Report 13891014 (Version 1)
Quarter: 2017Q3

REPORT INFORMATION
  Report Type: Spontaneous
  Country: LV (occurrence: LV)
  Receive Date: 20170822
  Receipt Date: 20170822
  Transmission Date: 20171127
  Serious: Yes (Other)
  Sender: FDA-Public Use
  Company Number: LV-ACCORD-057623

PATIENT
  Age: 54 Year
  Sex: Male

DRUGS (3)
  1. IRINOTECAN [Suspect]
     Active Substance: IRINOTECAN
     Indication: RECTAL CANCER
     Dates: start: 20161007, end: 20170214
  2. OXALIPLATIN. [Suspect]
     Active Substance: OXALIPLATIN
     Indication: RECTAL CANCER
     Dates: start: 20151116, end: 20160323
  3. TEGAFUR/TEGAFUR SODIUM [Suspect]
     Active Substance: TEGAFUR
     Indication: RECTAL CANCER
     Dates: start: 20151116, end: 20160323

REACTIONS (5)
  - Nausea [Unknown]
  - Aspartate aminotransferase increased [Unknown]
  - Alanine aminotransferase increased [Unknown]
  - Vomiting [Unknown]
  - Polyneuropathy [Unknown]
